FAERS Safety Report 4825989-8 (Version None)
Quarter: 2005Q4

REPORT INFORMATION
  Report Type: 
  Country: None (occurrence: None)
  Receive Date: 20051111
  Receipt Date: 20050804
  Transmission Date: 20060501
  Serious: Yes (Hospitalization, Disabling)
  Sender: FDA-Public Use
  Company Number: US-MERCK-0508USA01272

PATIENT
  Age: 52 Year
  Sex: Male
  Weight: 130 kg

DRUGS (4)
  1. VIOXX [Suspect]
     Indication: ARTHRITIS
     Route: 048
     Dates: start: 20001230, end: 20010815
  2. PROCARDIA XL [Concomitant]
     Indication: HYPERTENSION
     Route: 048
  3. ATENOLOL [Concomitant]
     Indication: HYPERTENSION
     Route: 065
  4. AZULFIDINE [Concomitant]
     Indication: PSORIATIC ARTHROPATHY
     Route: 065

REACTIONS (6)
  - ATELECTASIS [None]
  - ATRIAL FIBRILLATION [None]
  - CORONARY ARTERY DISEASE [None]
  - HAEMOGLOBIN DECREASED [None]
  - MYOCARDIAL INFARCTION [None]
  - PSORIATIC ARTHROPATHY [None]
